FAERS Safety Report 23559624 (Version 5)
Quarter: 2025Q1

REPORT INFORMATION
  Report Type: Report from Study
  Country: US (occurrence: US)
  Receive Date: 20240223
  Receipt Date: 20250318
  Transmission Date: 20250409
  Serious: Yes (Hospitalization, Other)
  Sender: NOVARTIS
  Company Number: US-002147023-NVSC2024US037918

PATIENT
  Sex: Female

DRUGS (2)
  1. MEKINIST [Suspect]
     Active Substance: TRAMETINIB DIMETHYL SULFOXIDE
     Indication: Ovarian cancer
     Dosage: 2 MG, QD
     Route: 048
     Dates: start: 202312
  2. MEKINIST [Suspect]
     Active Substance: TRAMETINIB DIMETHYL SULFOXIDE
     Dosage: 2 MG, QD
     Route: 048

REACTIONS (7)
  - Stevens-Johnson syndrome [Unknown]
  - Acne [Unknown]
  - Visual impairment [Unknown]
  - Rash [Unknown]
  - Headache [Recovered/Resolved]
  - Vision blurred [Recovering/Resolving]
  - Product use in unapproved indication [Unknown]
